FAERS Safety Report 19111194 (Version 1)
Quarter: 2021Q2

REPORT INFORMATION
  Report Type: Report from Study
  Country: KR (occurrence: KR)
  Receive Date: 20210408
  Receipt Date: 20210408
  Transmission Date: 20210717
  Serious: Yes (Hospitalization, Other)
  Sender: FDA-Public Use
  Company Number: KR-JNJFOC-20210327290

PATIENT
  Age: 17 Year
  Sex: Female
  Weight: 33.6 kg

DRUGS (1)
  1. ERDAFITINIB. [Suspect]
     Active Substance: ERDAFITINIB
     Indication: BRAIN NEOPLASM
     Route: 048
     Dates: start: 20210210, end: 20210315

REACTIONS (5)
  - Hyperphosphataemia [Not Recovered/Not Resolved]
  - Off label use [Unknown]
  - Transient ischaemic attack [Recovered/Resolved]
  - Brain neoplasm [Not Recovered/Not Resolved]
  - Product use in unapproved indication [Unknown]

NARRATIVE: CASE EVENT DATE: 20210210
